FAERS Safety Report 18471712 (Version 17)
Quarter: 2023Q2

REPORT INFORMATION
  Report Type: Report from Study
  Country: US (occurrence: US)
  Receive Date: 20201105
  Receipt Date: 20230520
  Transmission Date: 20230722
  Serious: Yes (Hospitalization, Other)
  Sender: FDA-Public Use
  Company Number: US-TAKEDA-2020TUS044458

PATIENT
  Age: 27 Year
  Sex: Male

DRUGS (2)
  1. HUMAN IMMUNOGLOBULIN G [Suspect]
     Active Substance: HUMAN IMMUNOGLOBULIN G
     Indication: Immunodeficiency common variable
     Dosage: UNK, Q4WEEKS
     Route: 042
  2. HUMAN IMMUNOGLOBULIN G [Suspect]
     Active Substance: HUMAN IMMUNOGLOBULIN G
     Indication: Primary immunodeficiency syndrome

REACTIONS (29)
  - Pneumonia [Unknown]
  - Suicide attempt [Recovered/Resolved]
  - Infusion site swelling [Unknown]
  - Dizziness [Unknown]
  - Illness [Unknown]
  - Fall [Unknown]
  - Multiple allergies [Unknown]
  - Dry mouth [Unknown]
  - Protein total decreased [Unknown]
  - Ocular discomfort [Unknown]
  - COVID-19 [Unknown]
  - Swelling face [Unknown]
  - Oropharyngeal pain [Unknown]
  - Fatigue [Unknown]
  - Ligament sprain [Unknown]
  - Post-traumatic stress disorder [Unknown]
  - Productive cough [Unknown]
  - Road traffic accident [Unknown]
  - Cardiac disorder [Unknown]
  - Nasopharyngitis [Recovering/Resolving]
  - Bronchitis [Recovered/Resolved]
  - Discomfort [Unknown]
  - Arthralgia [Unknown]
  - Contusion [Unknown]
  - Myalgia [Unknown]
  - Malaise [Unknown]
  - Diarrhoea [Unknown]
  - Insurance issue [Unknown]
  - Inappropriate schedule of product administration [Unknown]

NARRATIVE: CASE EVENT DATE: 20200601
